FAERS Safety Report 7516156-8 (Version None)
Quarter: 2011Q2

REPORT INFORMATION
  Report Type: 
  Country: None (occurrence: None)
  Receive Date: 20110520
  Receipt Date: 20110506
  Transmission Date: 20111010
  Serious: Yes (Hospitalization)
  Sender: FDA-Public Use
  Company Number: UTC-006932

PATIENT
  Age: 43 Year
  Sex: Female

DRUGS (3)
  1. DIURETICS (DIURETICS) [Concomitant]
  2. TYVASO [Suspect]
     Indication: COR PULMONALE CHRONIC
     Dosage: 18-54 MICROGRAM (4 IN 1 D),INHALATION
     Route: 055
     Dates: start: 20110301
  3. REVATIO [Concomitant]

REACTIONS (3)
  - WHITE BLOOD CELL COUNT DECREASED [None]
  - GASTROINTESTINAL INFECTION [None]
  - PLATELET COUNT DECREASED [None]
